FAERS Safety Report 4804566-9 (Version None)
Quarter: 2005Q4

REPORT INFORMATION
  Report Type: 
  Country: None (occurrence: None)
  Receive Date: 20051020
  Receipt Date: 20050315
  Transmission Date: 20060501
  Serious: Yes (Hospitalization)
  Sender: FDA-Public Use
  Company Number: US-MERCK-0503USA03278

PATIENT
  Age: 61 Year
  Sex: Female
  Weight: 101 kg

DRUGS (6)
  1. VIOXX [Suspect]
     Indication: MONARTHRITIS
     Route: 048
     Dates: start: 20000425, end: 20000702
  2. GLUCOTROL [Concomitant]
     Route: 065
  3. GLUCOTROL [Concomitant]
     Route: 065
  4. PRILOSEC [Concomitant]
     Route: 065
  5. VASOTEC [Concomitant]
     Route: 065
     Dates: start: 19950101
  6. [THERAPY UNSPECIFIED] [Concomitant]
     Route: 065

REACTIONS (14)
  - ARRHYTHMIA [None]
  - BLOOD CHOLESTEROL INCREASED [None]
  - BRACHIAL PLEXUS INJURY [None]
  - CARDIOMEGALY [None]
  - CAROTID ARTERY OCCLUSION [None]
  - CARPAL TUNNEL SYNDROME [None]
  - CEREBRAL INFARCTION [None]
  - CEREBROVASCULAR ACCIDENT [None]
  - CHEST PAIN [None]
  - DYSAESTHESIA [None]
  - GASTROOESOPHAGEAL REFLUX DISEASE [None]
  - HYPERTENSION [None]
  - UPPER RESPIRATORY TRACT INFECTION [None]
  - VISION BLURRED [None]
